FAERS Safety Report 20010723 (Version 1)
Quarter: 2021Q4

REPORT INFORMATION
  Report Type: Spontaneous
  Country: CA (occurrence: CA)
  Receive Date: 20211028
  Receipt Date: 20211028
  Transmission Date: 20220304
  Serious: Yes (Hospitalization)
  Sender: FDA-Public Use
  Company Number: CA-TEVA-2021-CA-1969720

PATIENT
  Age: 43 Year
  Sex: Female
  Weight: 159 kg

DRUGS (10)
  1. FLUOXETINE [Suspect]
     Active Substance: FLUOXETINE HYDROCHLORIDE
     Indication: Depression
     Dosage: 10 MILLIGRAM DAILY;
     Route: 048
  2. BUPROPION [Suspect]
     Active Substance: BUPROPION
     Indication: Depression
     Dosage: 300 MILLIGRAM DAILY;
     Route: 048
  3. MAGNESIUM [Concomitant]
     Active Substance: MAGNESIUM
  4. MINERALS [Concomitant]
     Active Substance: MINERALS
  5. VITAMIN A [Concomitant]
     Active Substance: VITAMIN A
  6. VITAMIN B1 [Concomitant]
     Active Substance: THIAMINE HYDROCHLORIDE
  7. VITAMIN B12 [Concomitant]
     Active Substance: CYANOCOBALAMIN
  8. VITAMIN C [Concomitant]
     Active Substance: ASCORBIC ACID
  9. VITAMIN E [Concomitant]
     Active Substance: .ALPHA.-TOCOPHEROL
  10. WOMEN^S MULTI [Concomitant]

REACTIONS (4)
  - Abdominal pain upper [Recovering/Resolving]
  - Hepatic enzyme abnormal [Recovering/Resolving]
  - Nausea [Recovering/Resolving]
  - Vomiting [Recovering/Resolving]
